FAERS Safety Report 15689275 (Version 2)
Quarter: 2019Q3

REPORT INFORMATION
  Report Type: Report from Study
  Country: TW (occurrence: TW)
  Receive Date: 20181205
  Receipt Date: 20190802
  Transmission Date: 20191004
  Serious: Yes (Other)
  Sender: FDA-Public Use
  Company Number: TW-SA-2018SA329373

PATIENT
  Age: 20 Year
  Sex: Female
  Weight: 53 kg

DRUGS (6)
  1. RIFAPENTINE [Suspect]
     Active Substance: RIFAPENTINE
     Indication: LATENT TUBERCULOSIS
     Dosage: 900 MG, QW
     Route: 048
  2. RIFAPENTINE [Suspect]
     Active Substance: RIFAPENTINE
     Dosage: 900 MG, QW
     Route: 048
  3. ISONIAZID. [Suspect]
     Active Substance: ISONIAZID
     Indication: LATENT TUBERCULOSIS
     Dosage: 15 MG/KG, QW
     Route: 048
  4. ISONIAZID. [Suspect]
     Active Substance: ISONIAZID
     Dosage: 15 MG/KG, QW
     Route: 048
  5. ISONIAZID. [Suspect]
     Active Substance: ISONIAZID
     Dosage: 15 MG/KG, QW
     Route: 048
  6. RIFAPENTINE [Suspect]
     Active Substance: RIFAPENTINE
     Dosage: 900 MG, QW
     Route: 048

REACTIONS (7)
  - Pyrexia [Recovered/Resolved]
  - Myalgia [Recovered/Resolved]
  - Influenza like illness [Recovered/Resolved]
  - Headache [Recovered/Resolved]
  - Shock [Recovered/Resolved]
  - Chills [Recovered/Resolved]
  - Nausea [Recovered/Resolved]
